FAERS Safety Report 4645730-1 (Version None)
Quarter: 2005Q2

REPORT INFORMATION
  Report Type: 
  Country: None (occurrence: None)
  Receive Date: 20050425
  Receipt Date: 20050411
  Transmission Date: 20051028
  Serious: Yes (Other)
  Sender: FDA-Public Use
  Company Number: 2005058431

PATIENT
  Age: 56 Year
  Sex: Male
  Weight: 79.3795 kg

DRUGS (6)
  1. BEXTRA [Suspect]
     Indication: SPINAL OSTEOARTHRITIS
  2. CELEBREX [Suspect]
     Indication: SPINAL OSTEOARTHRITIS
     Dosage: 200 MG
  3. ROFECOXIB [Suspect]
     Indication: SPINAL OSTEOARTHRITIS
     Dosage: 50 MG (25 MG, 2 IN 1 D)
  4. INDOMETHACIN [Suspect]
     Indication: SPINAL OSTEOARTHRITIS
     Dosage: 2 IN 1 D)
  5. LOSARTAN POTASSIUM [Concomitant]
  6. LOTREL [Concomitant]

REACTIONS (8)
  - BURNING SENSATION [None]
  - CHEST PAIN [None]
  - DIARRHOEA [None]
  - DIZZINESS [None]
  - DRUG EFFECT DECREASED [None]
  - DRUG TOLERANCE [None]
  - LEFT VENTRICULAR FAILURE [None]
  - STOMACH DISCOMFORT [None]
